FAERS Safety Report 8919911 (Version 1)
Quarter: 2012Q4

REPORT INFORMATION
  Report Type: 
  Country: GB (occurrence: GB)
  Receive Date: 20121121
  Receipt Date: 20121121
  Transmission Date: 20130627
  Serious: Yes (Other)
  Sender: FDA-Public Use
  Company Number: GB-PERRIGO-12GB009990

PATIENT
  Age: 70 Year
  Sex: Female
  Weight: 72.2 kg

DRUGS (8)
  1. IBUPROFEN 16028/0013 200 MG [Suspect]
     Indication: PRODUCT USED FOR UNKNOWN INDICATION
     Dosage: 400 mg, tid
     Route: 048
  2. LOPERAMIDE 16028/0032 2 MG [Suspect]
     Indication: FUNCTIONAL GASTROINTESTINAL DISORDER
     Dosage: 2 mg, prn
     Route: 048
  3. LANSOPRAZOLE [Suspect]
     Indication: PRODUCT USED FOR UNKNOWN INDICATION
     Dosage: 30 mg, UNK
     Route: 048
  4. ATORVASTATIN [Suspect]
     Indication: PRODUCT USED FOR UNKNOWN INDICATION
     Dosage: 80 mg, qd
     Route: 065
  5. CARBAMAZEPINE [Suspect]
     Indication: ANALGESIC THERAPY
     Dosage: 100 mg, UNK
     Route: 065
  6. ISOSORBIDE MONONITRATE [Suspect]
     Dosage: 1 DF, qd
     Route: 065
  7. GLYCERYL TRINITRATE [Suspect]
     Indication: PRODUCT USED FOR UNKNOWN INDICATION
     Dosage: 400 micorgrams
     Route: 060
  8. METFORMIN [Suspect]
     Indication: PRODUCT USED FOR UNKNOWN INDICATION
     Dosage: 500 mg, bid
     Route: 065

REACTIONS (1)
  - Colitis microscopic [Not Recovered/Not Resolved]
